FAERS Safety Report 6337140-6 (Version None)
Quarter: 2009Q3

REPORT INFORMATION
  Report Type: 
  Country: None (occurrence: None)
  Receive Date: 20090831
  Receipt Date: 20090818
  Transmission Date: 20100115
  Serious: Yes (Death, Other)
  Sender: FDA-Public Use
  Company Number: 2009-03401

PATIENT
  Age: 78 Year
  Sex: Female
  Weight: 43 kg

DRUGS (12)
  1. VELCADE [Suspect]
     Indication: MULTIPLE MYELOMA
     Dosage: 1.7  MG, INTRAVENOUS
     Route: 042
     Dates: start: 20070907, end: 20070914
  2. DEXAMETHASONE TAB [Suspect]
     Indication: MULTIPLE MYELOMA
     Dosage: 20MG, INTRAVENOUS
     Route: 042
     Dates: start: 20070907, end: 20070914
  3. MAXIPIME [Concomitant]
  4. ZOMETA [Concomitant]
  5. ANTITHROMBIN III (ANTITHROMBIN III) [Concomitant]
  6. MYCOSYST [Concomitant]
  7. BACTRIM [Concomitant]
  8. FAMOTIDINE [Concomitant]
  9. MAGNESIUM OXIDE (MAGNESIUM OXIDE) [Concomitant]
  10. ACYCLOVIR [Concomitant]
  11. RED BLOOD CELLS [Concomitant]
  12. PLATELETS [Concomitant]

REACTIONS (5)
  - DELIRIUM [None]
  - DISEASE PROGRESSION [None]
  - MULTIPLE MYELOMA [None]
  - PLATELET COUNT DECREASED [None]
  - TUMOUR LYSIS SYNDROME [None]
